FAERS Safety Report 9832883 (Version 2)
Quarter: 2014Q1

REPORT INFORMATION
  Report Type: Spontaneous
  Country: GB (occurrence: GB)
  Receive Date: 20140121
  Receipt Date: 20140327
  Transmission Date: 20141002
  Serious: Yes (Death, Hospitalization, Other)
  Sender: FDA-Public Use
  Company Number: GB-PFIZER INC-2014013912

PATIENT
  Age: 72 Year
  Sex: Male
  Weight: 74 kg

DRUGS (17)
  1. TAZOCIN [Suspect]
     Indication: URINARY TRACT INFECTION
     Dosage: 10 DOSES GIVEN (4.5 G 8-HOURLY)
     Route: 042
     Dates: start: 20130822, end: 20130828
  2. PARACETAMOL [Suspect]
     Indication: GOUT
     Dosage: 16 G (RECEIVED 1G 6-HOURLY BY MOUTH)
     Route: 048
     Dates: start: 20130822, end: 20130828
  3. WARFARIN [Concomitant]
     Indication: ANTICOAGULANT THERAPY
  4. FUROSEMIDE [Concomitant]
  5. SPIRONOLACTONE [Concomitant]
  6. DIGOXIN [Concomitant]
  7. BISOPROLOL [Concomitant]
  8. CANDESARTAN [Concomitant]
  9. PRAVASTATIN [Concomitant]
  10. TAMSULOSIN [Concomitant]
  11. FINASTERIDE [Concomitant]
  12. COLCHICINE [Concomitant]
     Indication: GOUT
  13. ALLOPURINOL [Concomitant]
     Indication: GOUT
     Dosage: INCREASED DOSE IN AUGUST 2013 TO TREAT THE GOUT
  14. TRIMETHOPRIM [Concomitant]
     Indication: URINARY TRACT INFECTION
  15. IBUPROFEN [Concomitant]
     Indication: GOUT
     Dosage: UNK
     Dates: start: 201308, end: 201308
  16. BENZYLPENICILLIN [Concomitant]
     Dosage: 2 DOSES
  17. FLUCLOXACILLIN [Concomitant]
     Dosage: 2 DOSES

REACTIONS (3)
  - Hepatitis acute [Fatal]
  - Cardiac arrest [Fatal]
  - Convulsion [Not Recovered/Not Resolved]
